FAERS Safety Report 17539494 (Version 1)
Quarter: 2020Q1

REPORT INFORMATION
  Report Type: Spontaneous
  Country: US (occurrence: US)
  Receive Date: 20200313
  Receipt Date: 20200313
  Transmission Date: 20200409
  Serious: No
  Sender: FDA-Public Use
  Company Number: US-PFIZER INC-2018526811

PATIENT
  Age: 82 Year
  Sex: Female
  Weight: 53.52 kg

DRUGS (2)
  1. AROMASIN [Suspect]
     Active Substance: EXEMESTANE
     Indication: MASTECTOMY
  2. AROMASIN [Suspect]
     Active Substance: EXEMESTANE
     Indication: BREAST CANCER
     Dosage: 25 MG, 1X/DAY (ONCE NIGHTLY)
     Route: 048
     Dates: start: 2017

REACTIONS (1)
  - Hypoacusis [Unknown]
